FAERS Safety Report 7241662-3 (Version None)
Quarter: 2011Q1

REPORT INFORMATION
  Report Type: 
  Country: None (occurrence: None)
  Receive Date: 20110124
  Receipt Date: 20110113
  Transmission Date: 20110831
  Serious: Yes (Other)
  Sender: FDA-Public Use
  Company Number: PHHY2011CA01818

PATIENT
  Sex: Male

DRUGS (4)
  1. CLOZARIL [Suspect]
     Dosage: UNK
     Dates: start: 20100901
  2. CLOZARIL [Suspect]
     Indication: SCHIZOPHRENIA
     Dosage: UNK
     Dates: start: 20101011
  3. CLOZARIL [Suspect]
     Dosage: 300 MG, UNK
  4. CLOZARIL [Suspect]
     Dosage: 150 MG, UNK

REACTIONS (6)
  - SWELLING FACE [None]
  - WHITE BLOOD CELL DISORDER [None]
  - PNEUMONIA [None]
  - INFECTION [None]
  - COUGH [None]
  - TOOTH ABSCESS [None]
